FAERS Safety Report 5915207-1 (Version None)
Quarter: 2008Q4

REPORT INFORMATION
  Report Type: 
  Country: None (occurrence: None)
  Receive Date: 20081010
  Receipt Date: 20080929
  Transmission Date: 20090506
  Serious: Yes (Death, Hospitalization, Other)
  Sender: FDA-Public Use
  Company Number: US-JNJFOC-20080706027

PATIENT
  Sex: Male
  Weight: 61.24 kg

DRUGS (6)
  1. REGRANEX [Suspect]
     Route: 061
  2. REGRANEX [Suspect]
     Indication: DIABETIC ULCER
     Route: 061
  3. CELEBREX [Concomitant]
     Indication: RHEUMATOID ARTHRITIS
  4. LIPITOR [Concomitant]
     Indication: CORONARY ARTERY BYPASS
  5. ISOSORBIDE [Concomitant]
     Indication: DRUG USE FOR UNKNOWN INDICATION
  6. GABAPENTIN [Concomitant]
     Indication: PAIN

REACTIONS (5)
  - BILE DUCT OBSTRUCTION [None]
  - CELLULITIS [None]
  - HEPATIC FAILURE [None]
  - INTESTINAL OBSTRUCTION [None]
  - PANCREATIC CARCINOMA [None]
